FAERS Safety Report 5529392-7 (Version None)
Quarter: 2007Q4

REPORT INFORMATION
  Report Type: 
  Country: None (occurrence: None)
  Receive Date: 20071129
  Receipt Date: 20071126
  Transmission Date: 20080405
  Serious: Yes (Hospitalization)
  Sender: FDA-Public Use
  Company Number: B0497524A

PATIENT
  Age: 83 Year
  Sex: Female

DRUGS (3)
  1. KEFEXIN [Suspect]
     Indication: WOUND INFECTION
     Dosage: 750MG TWICE PER DAY
     Route: 048
     Dates: start: 20071105, end: 20071111
  2. ZINACEF [Suspect]
     Indication: WOUND INFECTION
     Route: 065
     Dates: start: 20071103, end: 20071105
  3. PARACETAMOL [Concomitant]
     Route: 048
     Dates: start: 20071102

REACTIONS (3)
  - BONE MARROW FAILURE [None]
  - NEUTROPHIL COUNT DECREASED [None]
  - PYREXIA [None]
